FAERS Safety Report 5725288-6 (Version None)
Quarter: 2008Q2

REPORT INFORMATION
  Report Type: 
  Country: None (occurrence: None)
  Receive Date: 20080429
  Receipt Date: 20080422
  Transmission Date: 20081010
  Serious: Yes (Other)
  Sender: FDA-Public Use
  Company Number: CHPA2008US07045

PATIENT
  Age: 6 Year
  Sex: Male
  Weight: 21.8 kg

DRUGS (1)
  1. TRIAMINIC DAY TIME COLD + COUGH (NCH) (DEXTROMETHORPHAN HYDROBROMIDE, [Suspect]
     Indication: NASOPHARYNGITIS
     Dosage: 1 TSP, BID, ORAL
     Route: 048
     Dates: start: 20080416, end: 20080417

REACTIONS (1)
  - EPILEPSY [None]
